FAERS Safety Report 11234162 (Version 5)
Quarter: 2017Q1

REPORT INFORMATION
  Report Type: Spontaneous
  Country: US (occurrence: US)
  Receive Date: 20150702
  Receipt Date: 20170308
  Transmission Date: 20170428
  Serious: No
  Sender: FDA-Public Use
  Company Number: US-PFIZER INC-2015216551

PATIENT
  Age: 50 Year
  Sex: Female
  Weight: 63.5 kg

DRUGS (11)
  1. LYRICA [Suspect]
     Active Substance: PREGABALIN
     Dosage: 150 MG, 1X/DAY (BEDTIME) (Q PM)
     Route: 048
  2. TRAMADOL. [Concomitant]
     Active Substance: TRAMADOL
     Dosage: UNK
  3. LYRICA [Suspect]
     Active Substance: PREGABALIN
     Indication: ARTHRALGIA
     Dosage: 150 MG, 3X/DAY
     Route: 048
  4. LYRICA [Suspect]
     Active Substance: PREGABALIN
     Indication: FIBROMYALGIA
     Dosage: 2X/DAY(300 MG 1 TABLET QD IN THE MORNING AND 150 MG 1 TABLET QHS AT BEDTIME IN THE EVENING)
     Route: 048
     Dates: start: 2014
  5. BUPROPION. [Concomitant]
     Active Substance: BUPROPION
     Dosage: UNK
  6. SUMATRIPTAN. [Concomitant]
     Active Substance: SUMATRIPTAN
     Dosage: UNK
  7. IBUPROFEN. [Concomitant]
     Active Substance: IBUPROFEN
     Indication: PAIN
     Dosage: UNK (300MG-400MG; 3-4 TIMES A DAY)
     Route: 048
  8. LYRICA [Suspect]
     Active Substance: PREGABALIN
     Dosage: 300 MG, DAILY (Q PM)
     Route: 048
  9. XANAX [Concomitant]
     Active Substance: ALPRAZOLAM
     Dosage: UNK
  10. IBUPROFEN. [Concomitant]
     Active Substance: IBUPROFEN
     Indication: HEADACHE
  11. IBUPROFEN. [Concomitant]
     Active Substance: IBUPROFEN
     Indication: INFLAMMATION

REACTIONS (7)
  - Asthenia [Recovered/Resolved]
  - Depressed mood [Recovered/Resolved]
  - Gait disturbance [Recovered/Resolved]
  - Drug prescribing error [Unknown]
  - Pain [Unknown]
  - Paraesthesia [Recovered/Resolved]
  - Muscle contractions involuntary [Unknown]
